FAERS Safety Report 14503948 (Version 1)
Quarter: 2018Q1

REPORT INFORMATION
  Report Type: Spontaneous
  Country: US (occurrence: US)
  Receive Date: 20180208
  Receipt Date: 20180208
  Transmission Date: 20180509
  Serious: No
  Sender: FDA-Public Use
  Company Number: US-JNJFOC-20180200150

PATIENT
  Sex: Female

DRUGS (6)
  1. VITAMIN C [Concomitant]
     Active Substance: ASCORBIC ACID
  2. MULTIVITAMINS [Concomitant]
     Active Substance: VITAMINS
  3. AMBIEN [Concomitant]
     Active Substance: ZOLPIDEM TARTRATE
  4. NEURONTIN [Concomitant]
     Active Substance: GABAPENTIN
  5. IRON [Concomitant]
     Active Substance: IRON
  6. IMBRUVICA [Suspect]
     Active Substance: IBRUTINIB
     Indication: WALDENSTROM^S MACROGLOBULINAEMIA
     Route: 048
     Dates: start: 20180103

REACTIONS (1)
  - Nausea [Unknown]
